FAERS Safety Report 10157614 (Version 1)
Quarter: 2014Q2

REPORT INFORMATION
  Report Type: Spontaneous
  Country: FR (occurrence: FR)
  Receive Date: 20140507
  Receipt Date: 20140507
  Transmission Date: 20141212
  Serious: Yes (Other)
  Sender: FDA-Public Use
  Company Number: FR-SA-2014SA055289

PATIENT
  Age: 81 Year
  Sex: Female

DRUGS (14)
  1. LOVENOX [Suspect]
     Indication: PRODUCT USED FOR UNKNOWN INDICATION
     Route: 058
     Dates: start: 20140303
  2. ORBENINE [Suspect]
     Indication: PRODUCT USED FOR UNKNOWN INDICATION
     Route: 042
     Dates: start: 20140303, end: 20140306
  3. OFLOCET [Concomitant]
     Indication: PYELONEPHRITIS
     Dates: start: 20140301, end: 20140303
  4. GENTAMICIN [Concomitant]
     Route: 042
     Dates: start: 20140303, end: 20140303
  5. KARDEGIC [Concomitant]
     Route: 048
     Dates: start: 20140303
  6. ACETAMINOPHEN [Concomitant]
     Route: 042
     Dates: start: 20140303
  7. PLAVIX [Concomitant]
     Route: 048
  8. CARDENSIEL [Concomitant]
     Route: 048
  9. COVERSYL [Concomitant]
     Route: 048
  10. TAHOR [Concomitant]
     Route: 048
  11. INEXIUM [Concomitant]
     Route: 048
  12. EFFEXOR [Concomitant]
     Route: 048
  13. SERESTA [Concomitant]
     Route: 048
  14. ZOLPIDEM [Concomitant]
     Route: 048

REACTIONS (1)
  - Hepatitis acute [Recovered/Resolved]
